FAERS Safety Report 10516507 (Version 1)
Quarter: 2014Q4

REPORT INFORMATION
  Report Type: Spontaneous
  Country: US (occurrence: None)
  Receive Date: 20141003
  Receipt Date: 20141003
  Transmission Date: 20150528
  Serious: No
  Sender: FDA-Public Use
  Company Number: 1399020

PATIENT
  Age: 53 Year
  Sex: Male
  Weight: 68 kg

DRUGS (6)
  1. PEG-INTERFERON ALFA 2A [Suspect]
     Active Substance: PEGINTERFERON ALFA-2A
     Indication: HEPATITIS C
     Dosage: 180 UG/KG, 1 IN 1 WK, SUBCUTANEOUS
     Route: 058
     Dates: start: 20140328
  2. SOVALDI [Concomitant]
     Active Substance: SOFOSBUVIR
  3. PEG-INTERFERON ALFA 2A [Suspect]
     Active Substance: PEGINTERFERON ALFA-2A
     Indication: ANTIVIRAL TREATMENT
     Dosage: 180 UG/KG, 1 IN 1 WK, SUBCUTANEOUS
     Route: 058
     Dates: start: 20140328
  4. RIBASPHERE [Suspect]
     Active Substance: RIBAVIRIN
     Indication: HEPATITIS C
     Dosage: 2 TABS AM, 3 TABS PM (200 MG, 2 IN 1 D), ORAL
     Route: 048
     Dates: start: 20140328
  5. RIBASPHERE [Suspect]
     Active Substance: RIBAVIRIN
     Indication: ANTIVIRAL TREATMENT
     Dosage: 2 TABS AM, 3 TABS PM (200 MG, 2 IN 1 D), ORAL
     Route: 048
     Dates: start: 20140328
  6. DOXYCYCLINE HYCLATE. [Concomitant]
     Active Substance: DOXYCYCLINE HYCLATE

REACTIONS (1)
  - Neutropenia [None]

NARRATIVE: CASE EVENT DATE: 20140423
